FAERS Safety Report 5004033-6 (Version None)
Quarter: 2006Q2

REPORT INFORMATION
  Report Type: 
  Country: None (occurrence: None)
  Receive Date: 20060517
  Receipt Date: 20060412
  Transmission Date: 20061013
  Serious: Yes (Other)
  Sender: FDA-Public Use
  Company Number: PHBS2006JP05537

PATIENT
  Age: 75 Year
  Sex: Male

DRUGS (9)
  1. DIOVAN [Suspect]
     Dosage: 40 MG/DAY
     Route: 048
  2. MYSLEE [Concomitant]
     Dosage: 0.5 MG, UNK
     Route: 048
  3. FOIPAN [Concomitant]
     Dosage: 300 MG, UNK
     Route: 048
  4. CALBLOCK [Concomitant]
     Dosage: 16 MG, UNK
     Route: 048
  5. GASTER [Concomitant]
     Dosage: 40 MG, UNK
     Route: 048
     Dates: end: 20060412
  6. OMEPRAL [Concomitant]
     Dosage: 10 MG, UNK
     Route: 048
     Dates: end: 20060412
  7. MAGNESIUM OXIDE [Concomitant]
     Dosage: 4 G, UNK
     Route: 048
  8. ENTERONON R [Concomitant]
     Dosage: 9 G, UNK
     Route: 048
  9. GLAKAY [Concomitant]
     Dosage: 45 G, UNK
     Route: 048

REACTIONS (2)
  - BLOOD ALKALINE PHOSPHATASE INCREASED [None]
  - CHOLESTASIS [None]
